FAERS Safety Report 8369535 (Version 2)
Quarter: 2013Q1

REPORT INFORMATION
  Report Type: Report from Study
  Country: US (occurrence: US)
  Receive Date: 20120128
  Receipt Date: 20130131
  Transmission Date: 20140127
  Serious: No
  Sender: FDA-Public Use
  Company Number: US-ABBOTT-11P-163-0717275-00

PATIENT
  Sex: Female
  Weight: 90 kg

DRUGS (10)
  1. HUMIRA [Suspect]
     Dates: start: 2007
  2. ARAVA [Suspect]
     Indication: RHEUMATOID ARTHRITIS
     Dates: start: 200802
  3. STEROID [Suspect]
     Indication: ERYTHEMA MULTIFORME
     Route: 061
     Dates: start: 201008
  4. STEROID [Suspect]
     Indication: COXSACKIE VIRAL INFECTION
  5. FOLIC ACID [Concomitant]
     Indication: PRODUCT USED FOR UNKNOWN INDICATION
  6. CELEBREX [Concomitant]
     Indication: RHEUMATOID ARTHRITIS
  7. ORENCIA [Concomitant]
     Indication: PRODUCT USED FOR UNKNOWN INDICATION
  8. METFORMIN [Concomitant]
     Indication: PRODUCT USED FOR UNKNOWN INDICATION
  9. MULTIVITAMIN [Concomitant]
     Indication: PRODUCT USED FOR UNKNOWN INDICATION
  10. TYLENOL [Concomitant]
     Indication: PRODUCT USED FOR UNKNOWN INDICATION

REACTIONS (10)
  - Blister [Unknown]
  - Blister [Unknown]
  - Oedema peripheral [Unknown]
  - Rash generalised [Not Recovered/Not Resolved]
  - Erythema multiforme [Unknown]
  - Coxsackie viral infection [Unknown]
  - Skin atrophy [Unknown]
  - Alopecia [Recovered/Resolved]
  - Alopecia [Recovered/Resolved]
  - Psoriasis [Unknown]
